FAERS Safety Report 21181253 (Version 4)
Quarter: 2023Q1

REPORT INFORMATION
  Report Type: Report from Study
  Country: US (occurrence: US)
  Receive Date: 20220806
  Receipt Date: 20230209
  Transmission Date: 20230418
  Serious: Yes (Other)
  Sender: FDA-Public Use
  Company Number: US-UCBSA-2022034427

PATIENT
  Sex: Female

DRUGS (3)
  1. CERTOLIZUMAB PEGOL [Suspect]
     Active Substance: CERTOLIZUMAB PEGOL
     Indication: Rheumatoid arthritis
     Dosage: 400 MILLIGRAM, EV 2 WEEKS(QOW)
     Route: 058
     Dates: start: 20220609, end: 2022
  2. CERTOLIZUMAB PEGOL [Suspect]
     Active Substance: CERTOLIZUMAB PEGOL
     Dosage: 400 MILLIGRAM, EV 4 WEEKS
     Route: 058
     Dates: start: 2022
  3. PREDNISOLONE [Concomitant]
     Active Substance: PREDNISOLONE
     Indication: Eye inflammation

REACTIONS (5)
  - Surgery [Recovering/Resolving]
  - Spinal fusion surgery [Not Recovered/Not Resolved]
  - Swelling [Recovering/Resolving]
  - Eye inflammation [Not Recovered/Not Resolved]
  - Eye pain [Not Recovered/Not Resolved]

NARRATIVE: CASE EVENT DATE: 20220101
